FAERS Safety Report 25707524 (Version 2)
Quarter: 2025Q3

REPORT INFORMATION
  Report Type: Spontaneous
  Country: US (occurrence: US)
  Receive Date: 20250820
  Receipt Date: 20250820
  Transmission Date: 20251021
  Serious: No
  Sender: ASTELLAS
  Company Number: US-ASTELLAS-2025-AER-029568

PATIENT
  Age: 64 Year
  Sex: Male

DRUGS (4)
  1. XTANDI [Suspect]
     Active Substance: ENZALUTAMIDE
     Indication: Prostate cancer
     Route: 048
     Dates: start: 20240807, end: 20250203
  2. XTANDI [Suspect]
     Active Substance: ENZALUTAMIDE
     Route: 048
     Dates: start: 20250604
  3. ORGOVYX [Concomitant]
     Active Substance: RELUGOLIX
     Indication: Product used for unknown indication
     Route: 065
     Dates: start: 20240807, end: 20241205
  4. ORGOVYX [Concomitant]
     Active Substance: RELUGOLIX
     Route: 065
     Dates: start: 20250604

REACTIONS (2)
  - Blood testosterone increased [Not Recovered/Not Resolved]
  - Prostatic specific antigen increased [Unknown]
